FAERS Safety Report 9438662 (Version 1)
Quarter: 2013Q3

REPORT INFORMATION
  Report Type: Spontaneous
  Country: US (occurrence: US)
  Receive Date: 20130802
  Receipt Date: 20130802
  Transmission Date: 20140515
  Serious: Yes (Other)
  Sender: FDA-Public Use
  Company Number: US-ALLERGAN-1311343US

PATIENT
  Age: 40 Year
  Sex: Male

DRUGS (2)
  1. BOTOX? [Suspect]
     Indication: NEUROGENIC BLADDER
     Dosage: 200 UNITS, SINGLE
  2. BOTOX? [Suspect]
     Indication: HYPERTONIC BLADDER
     Dosage: 100 UNK, UNK

REACTIONS (3)
  - Bladder necrosis [Unknown]
  - Urinary bladder rupture [Unknown]
  - Cystitis [Unknown]
